FAERS Safety Report 7124766-5 (Version None)
Quarter: 2010Q4

REPORT INFORMATION
  Report Type: 
  Country: None (occurrence: None)
  Receive Date: 20101123
  Receipt Date: 20101123
  Transmission Date: 20110411
  Serious: Yes (Death)
  Sender: FDA-Public Use
  Company Number: None

PATIENT
  Age: 79 Year
  Sex: Female
  Weight: 68.4932 kg

DRUGS (1)
  1. ULORIC [Suspect]
     Dosage: 40 MGM DAILY
     Dates: start: 20100922

REACTIONS (3)
  - CARDIAC FAILURE CONGESTIVE [None]
  - PANCREATITIS [None]
  - PLEURAL EFFUSION [None]
